FAERS Safety Report 7384162-2 (Version None)
Quarter: 2011Q1

REPORT INFORMATION
  Report Type: 
  Country: None (occurrence: None)
  Receive Date: 20110330
  Receipt Date: 20110316
  Transmission Date: 20110831
  Serious: Yes (Hospitalization, Disabling)
  Sender: FDA-Public Use
  Company Number: B0707685A

PATIENT
  Sex: Female
  Weight: 60 kg

DRUGS (3)
  1. LAPATINIB [Suspect]
     Indication: BREAST CANCER
     Route: 048
     Dates: start: 20080701, end: 20090630
  2. IBUPROFEN [Concomitant]
     Indication: BACK PAIN
     Dosage: 400MG PER DAY
     Dates: start: 20080211, end: 20110201
  3. TRASTUZUMAB [Suspect]
     Indication: BREAST CANCER
     Route: 042
     Dates: start: 20080701, end: 20090529

REACTIONS (1)
  - GASTRIC CANCER [None]
